FAERS Safety Report 7296022-6 (Version None)
Quarter: 2011Q1

REPORT INFORMATION
  Report Type: 
  Country: None (occurrence: None)
  Receive Date: 20110216
  Receipt Date: 20110211
  Transmission Date: 20110831
  Serious: Yes (Hospitalization)
  Sender: FDA-Public Use
  Company Number: AU-AMGEN-AUSSP2009000082

PATIENT

DRUGS (8)
  1. CYCLOPHOSPHAMIDE [Concomitant]
  2. PREDNISONE TAB [Concomitant]
  3. ONCOVIN [Concomitant]
  4. NEULASTA [Suspect]
     Indication: CHEMOTHERAPY
  5. PROCARBAZINE [Concomitant]
  6. ETOPOSIDE [Concomitant]
  7. BLEOMYCIN [Concomitant]
  8. ADRIAMYCIN PFS [Concomitant]

REACTIONS (1)
  - BLOOD COUNT ABNORMAL [None]
